FAERS Safety Report 9025573 (Version 1)
Quarter: 2013Q1

REPORT INFORMATION
  Report Type: Report from Study
  Country: GB (occurrence: GB)
  Receive Date: 20130122
  Receipt Date: 20130122
  Transmission Date: 20140127
  Serious: Yes (Other)
  Sender: FDA-Public Use
  Company Number: GB-JNJFOC-20130110959

PATIENT
  Age: 71 Year
  Sex: Male

DRUGS (3)
  1. REMICADE [Suspect]
     Indication: RHEUMATOID ARTHRITIS
     Route: 042
     Dates: start: 20021209, end: 20030815
  2. OTHER BIOLOGICS [Concomitant]
     Dates: start: 200606
  3. METHOTREXATE [Concomitant]
     Dosage: START DATE: PRE-JAN-2004

REACTIONS (1)
  - Skin cancer [Unknown]
